FAERS Safety Report 7325843-6 (Version None)
Quarter: 2011Q1

REPORT INFORMATION
  Report Type: 
  Country: None (occurrence: None)
  Receive Date: 20110302
  Receipt Date: 20110222
  Transmission Date: 20110831
  Serious: Yes (Hospitalization)
  Sender: FDA-Public Use
  Company Number: US-ASTRAZENECA-2011SE09905

PATIENT
  Age: 21 Year
  Sex: Male

DRUGS (2)
  1. LEXAPRO [Concomitant]
  2. SEROQUEL XR [Suspect]
     Indication: BIPOLAR DISORDER
     Route: 048
     Dates: start: 20100801

REACTIONS (2)
  - COLITIS ULCERATIVE [None]
  - PANCREATITIS [None]
